FAERS Safety Report 4369576-7 (Version None)
Quarter: 2004Q2

REPORT INFORMATION
  Report Type: 
  Country: None (occurrence: None)
  Receive Date: 20040603
  Receipt Date: 20040519
  Transmission Date: 20050107
  Serious: Yes (Other)
  Sender: FDA-Public Use
  Company Number: PHEH2004US05601

PATIENT
  Age: 3 Month
  Sex: Female

DRUGS (1)
  1. ELIDEL [Suspect]
     Indication: ECZEMA
     Route: 061

REACTIONS (3)
  - BLISTER [None]
  - ERYTHEMA [None]
  - SUNBURN [None]
